FAERS Safety Report 17024117 (Version 3)
Quarter: 2019Q4

REPORT INFORMATION
  Report Type: Spontaneous
  Country: US (occurrence: US)
  Receive Date: 20191113
  Receipt Date: 20191223
  Transmission Date: 20200122
  Serious: No
  Sender: FDA-Public Use
  Company Number: US-009507513-1911USA004015

PATIENT
  Age: 20 Year
  Sex: Female
  Weight: 115.19 kg

DRUGS (2)
  1. WELLBUTRIN [Concomitant]
     Active Substance: BUPROPION HYDROCHLORIDE
     Indication: CONTRACEPTION
     Dosage: UNK
     Route: 048
  2. NEXPLANON [Suspect]
     Active Substance: ETONOGESTREL
     Indication: CONTRACEPTION
     Dosage: 1 IMPLANT,GOOD FOR 3 YEARS, LEFT UPPER ARM
     Route: 059
     Dates: start: 20190502, end: 20191101

REACTIONS (3)
  - Device breakage [Recovered/Resolved]
  - Attention deficit/hyperactivity disorder [Unknown]
  - Mood swings [Unknown]

NARRATIVE: CASE EVENT DATE: 2019
